FAERS Safety Report 8817242 (Version 1)
Quarter: 2012Q4

REPORT INFORMATION
  Report Type: 
  Country: US (occurrence: US)
  Receive Date: 20121004
  Receipt Date: 20121004
  Transmission Date: 20130627
  Serious: No
  Sender: FDA-Public Use
  Company Number: US-009507513-1210USA000435

PATIENT
  Age: 55 Year
  Sex: Male

DRUGS (3)
  1. JANUVIA [Suspect]
     Route: 048
  2. VICTOZA [Suspect]
     Dosage: 1.8 mg, qd
     Route: 058
  3. LANTUS [Suspect]
     Route: 058

REACTIONS (2)
  - Weight decreased [Unknown]
  - Blood glucose increased [Unknown]
